FAERS Safety Report 5631515-6 (Version None)
Quarter: 2008Q1

REPORT INFORMATION
  Report Type: 
  Country: None (occurrence: None)
  Receive Date: 20080215
  Receipt Date: 20080204
  Transmission Date: 20080703
  Serious: Yes (Hospitalization)
  Sender: FDA-Public Use
  Company Number: 237787K07USA

PATIENT
  Age: 59 Year
  Sex: Female

DRUGS (4)
  1. REBIF [Suspect]
     Indication: MULTIPLE SCLEROSIS
     Dosage: 44 MCG, 3 IN 1 WEEKS, SUBCUTANEOUS
     Route: 058
     Dates: start: 20050825
  2. NORTRIPTYLINE HCL [Concomitant]
  3. ARICEPT [Concomitant]
  4. NAMEMDA (MEMANTINE HYDROCHLORIDE) [Concomitant]

REACTIONS (1)
  - SPINAL COLUMN STENOSIS [None]
